FAERS Safety Report 10803904 (Version 2)
Quarter: 2015Q1

REPORT INFORMATION
  Report Type: Spontaneous
  Country: DK (occurrence: IE)
  Receive Date: 20150217
  Receipt Date: 20150316
  Transmission Date: 20150721
  Serious: Yes (Other)
  Sender: FDA-Public Use
  Company Number: IE-FRI-1000074529

PATIENT
  Age: 41 Year
  Sex: Female

DRUGS (5)
  1. LEXAPRO [Suspect]
     Active Substance: ESCITALOPRAM OXALATE
     Indication: STRESS
     Dosage: 10 MG
     Route: 065
     Dates: start: 20141218, end: 20150105
  2. ANTIBIOTICS [Concomitant]
     Active Substance: UNSPECIFIED INGREDIENT
     Indication: RASH
     Route: 065
  3. FUCITHALMIC [Suspect]
     Active Substance: FUSIDIC ACID
     Indication: EXOPHTHALMOS
     Route: 065
  4. SERETIDE [Concomitant]
     Active Substance: FLUTICASONE FUROATE\SALMETEROL XINAFOATE
     Indication: ASTHMA
     Route: 065
  5. LEXAPRO [Suspect]
     Active Substance: ESCITALOPRAM OXALATE
     Indication: DEPRESSION
     Route: 065
     Dates: start: 201408, end: 201408

REACTIONS (10)
  - Seizure [Recovered/Resolved]
  - Dizziness [Recovered/Resolved]
  - Hiccups [Recovered/Resolved]
  - Dyskinesia [Recovered/Resolved]
  - Product use issue [Recovered/Resolved]
  - Drug withdrawal syndrome [Recovered/Resolved]
  - Hallucination, visual [Recovered/Resolved]
  - Wheezing [Recovered/Resolved]
  - Palpitations [Recovered/Resolved]
  - Cold sweat [Recovered/Resolved]

NARRATIVE: CASE EVENT DATE: 201408
